FAERS Safety Report 8405175-5 (Version None)
Quarter: 2012Q2

REPORT INFORMATION
  Report Type: 
  Country: None (occurrence: None)
  Receive Date: 20120602
  Receipt Date: 20120520
  Transmission Date: 20120825
  Serious: No
  Sender: FDA-Public Use
  Company Number: US-BAYER-2012-051851

PATIENT

DRUGS (3)
  1. ASPIRIN [Suspect]
     Indication: BACK PAIN
  2. ALEVE (CAPLET) [Suspect]
     Indication: BACK PAIN
  3. ASPIRIN [Suspect]
     Indication: BACK PAIN
     Route: 048

REACTIONS (2)
  - BACK PAIN [None]
  - NO ADVERSE EVENT [None]
